FAERS Safety Report 11162507 (Version 1)
Quarter: 2015Q2

REPORT INFORMATION
  Report Type: Spontaneous
  Country: US (occurrence: US)
  Receive Date: 20150604
  Receipt Date: 20150604
  Transmission Date: 20150821
  Serious: No
  Sender: FDA-Public Use
  Company Number: US-SA-2015SA048736

PATIENT
  Age: 66 Year
  Sex: Male

DRUGS (10)
  1. SOLOSTAR [Concomitant]
     Active Substance: DEVICE
  2. LANTUS SOLOSTAR [Suspect]
     Active Substance: INSULIN GLARGINE
     Indication: TYPE 2 DIABETES MELLITUS
     Dosage: DOSE:15 AM AND 30 U QHS
     Route: 065
  3. LANTUS SOLOSTAR [Suspect]
     Active Substance: INSULIN GLARGINE
     Indication: TYPE 2 DIABETES MELLITUS
     Dosage: DOSE:15 AM AND 30 U QHS
     Route: 065
  4. SOLOSTAR [Concomitant]
     Active Substance: DEVICE
  5. LANTUS SOLOSTAR [Suspect]
     Active Substance: INSULIN GLARGINE
     Indication: TYPE 2 DIABETES MELLITUS
     Dosage: DOSE:15 AM AND 30 U QHS
     Route: 065
  6. SOLOSTAR [Concomitant]
     Active Substance: DEVICE
  7. SOLOSTAR [Concomitant]
     Active Substance: DEVICE
  8. LANTUS SOLOSTAR [Suspect]
     Active Substance: INSULIN GLARGINE
     Indication: TYPE 2 DIABETES MELLITUS
     Dosage: DOSE:15 AM AND 30 U QHS
     Route: 065
  9. SOLOSTAR [Concomitant]
     Active Substance: DEVICE
  10. LANTUS SOLOSTAR [Suspect]
     Active Substance: INSULIN GLARGINE
     Indication: TYPE 2 DIABETES MELLITUS
     Dosage: DOSE:15 AM AND 30 U QHS
     Route: 065

REACTIONS (3)
  - Sinus disorder [Unknown]
  - Malaise [Unknown]
  - Drug administration error [Unknown]
